FAERS Safety Report 25445060 (Version 1)
Quarter: 2025Q2

REPORT INFORMATION
  Report Type: Report from Study
  Country: US (occurrence: US)
  Receive Date: 20250617
  Receipt Date: 20250617
  Transmission Date: 20250716
  Serious: Yes (Other)
  Sender: RANBAXY
  Company Number: US-SUN PHARMACEUTICAL INDUSTRIES INC-2025R1-511906

PATIENT
  Age: 8 Decade

DRUGS (1)
  1. PREDNISONE [Suspect]
     Active Substance: PREDNISONE
     Indication: Uveal melanoma
     Dosage: 15 MILLIGRAM, DAILY
     Route: 048

REACTIONS (1)
  - Hypertransaminasaemia [Unknown]
